FAERS Safety Report 17444030 (Version 1)
Quarter: 2020Q1

REPORT INFORMATION
  Report Type: Spontaneous
  Country: HR (occurrence: HR)
  Receive Date: 20200221
  Receipt Date: 20200221
  Transmission Date: 20200409
  Serious: Yes (Other)
  Sender: FDA-Public Use
  Company Number: HR-US-PROVELL PHARMACEUTICALS LLC-E2B_90074899

PATIENT
  Sex: Male

DRUGS (2)
  1. EUTHYROX [Suspect]
     Active Substance: LEVOTHYROXINE SODIUM
     Indication: PRODUCT USED FOR UNKNOWN INDICATION
     Route: 048
  2. EUTHYROX [Suspect]
     Active Substance: LEVOTHYROXINE SODIUM
     Dosage: DOSE INCREASED
     Route: 048

REACTIONS (8)
  - Blood pressure decreased [Unknown]
  - Blood thyroid stimulating hormone increased [Unknown]
  - Onychoclasis [Unknown]
  - Arrhythmia [Unknown]
  - Thyroxine increased [Unknown]
  - Heart rate increased [Unknown]
  - Somnolence [Unknown]
  - Dry skin [Unknown]

NARRATIVE: CASE EVENT DATE: 2019
